FAERS Safety Report 5401876-1 (Version None)
Quarter: 2007Q3

REPORT INFORMATION
  Report Type: 
  Country: None (occurrence: None)
  Receive Date: 20070731
  Receipt Date: 20070724
  Transmission Date: 20080115
  Serious: Yes (Hospitalization, Other)
  Sender: FDA-Public Use
  Company Number: US-ELI_LILLY_AND_COMPANY-US200707005836

PATIENT
  Sex: Male

DRUGS (4)
  1. HUMALOG [Suspect]
     Indication: DIABETES MELLITUS
     Dosage: UNK, AS NEEDED
     Dates: start: 20020101
  2. HUMALOG [Suspect]
     Dosage: UNK, AS NEEDED
  3. NOVOLIN R [Concomitant]
  4. PREDNISONE [Concomitant]
     Indication: RENAL IMPAIRMENT

REACTIONS (4)
  - BLOOD GLUCOSE INCREASED [None]
  - CARDIAC OPERATION [None]
  - RENAL FAILURE [None]
  - VASCULAR OCCLUSION [None]
